FAERS Safety Report 8133784-X (Version None)
Quarter: 2012Q1

REPORT INFORMATION
  Report Type: 
  Country: None (occurrence: None)
  Receive Date: 20120213
  Receipt Date: 20120213
  Transmission Date: 20120608
  Serious: Yes (Other)
  Sender: FDA-Public Use
  Company Number: None

PATIENT
  Age: 63 Year
  Sex: Female
  Weight: 72.574 kg

DRUGS (3)
  1. ESTRACE [Suspect]
     Indication: VAGINAL DISORDER
     Dosage: APPLY 1/4 APPLICTORFULL
     Route: 067
     Dates: start: 20111117, end: 20120114
  2. ZETIA [Concomitant]
  3. PRAVASTATIN [Concomitant]

REACTIONS (1)
  - URINARY TRACT INFECTION [None]
